FAERS Safety Report 8456062-8 (Version None)
Quarter: 2012Q2

REPORT INFORMATION
  Report Type: 
  Country: None (occurrence: None)
  Receive Date: 20120621
  Receipt Date: 20120614
  Transmission Date: 20120825
  Serious: Yes (Other)
  Sender: FDA-Public Use
  Company Number: PHHY2012CH052710

PATIENT
  Age: 74 Year
  Sex: Female
  Weight: 60 kg

DRUGS (2)
  1. PRAMIPEXOLE [Concomitant]
     Indication: RESTLESS LEGS SYNDROME
     Dosage: 1.5 DF, PER DAY
     Route: 048
  2. VOLTAREN [Suspect]
     Indication: PAIN
     Dosage: 25 MG DAILY
     Route: 048
     Dates: start: 20120418, end: 20120422

REACTIONS (6)
  - CHOKING [None]
  - PRODUCTIVE COUGH [None]
  - OESOPHAGEAL SPASM [None]
  - VOMITING [None]
  - CHEST PAIN [None]
  - MUCOSAL ULCERATION [None]
